FAERS Safety Report 16914471 (Version 1)
Quarter: 2019Q4

REPORT INFORMATION
  Report Type: Other
  Country: TR (occurrence: TR)
  Receive Date: 20191014
  Receipt Date: 20191014
  Transmission Date: 20200122
  Serious: Yes (Hospitalization)
  Sender: FDA-Public Use
  Company Number: TR-GRANULES INDIA LIMITED-2075618

PATIENT
  Age: 87 Year
  Sex: Male

DRUGS (3)
  1. GOSERALIN ACETATE [Concomitant]
     Route: 065
  2. RAMIPRIL AND HYDROCHLOROTIAZIDE [Concomitant]
     Route: 065
  3. GABAPENTIN CAPSULES USP, 100 MG, 300 MG, 400 MG [Suspect]
     Active Substance: GABAPENTIN
     Indication: MUSCULOSKELETAL PAIN
     Route: 065

REACTIONS (3)
  - Gait inability [Recovered/Resolved]
  - Product use in unapproved indication [Unknown]
  - Myoclonus [Recovered/Resolved]
